FAERS Safety Report 9989054 (Version 2)
Quarter: 2014Q1

REPORT INFORMATION
  Report Type: Report from Study
  Country: PR (occurrence: PR)
  Receive Date: 20140310
  Receipt Date: 20140310
  Transmission Date: 20141002
  Serious: No
  Sender: FDA-Public Use
  Company Number: PR-ABBVIE-12P-131-1001797-00

PATIENT
  Sex: Female
  Weight: 54.48 kg

DRUGS (4)
  1. HUMIRA [Suspect]
     Indication: JUVENILE IDIOPATHIC ARTHRITIS
     Route: 050
  2. HUMIRA [Suspect]
     Route: 050
  3. FOLIC ACID [Suspect]
     Indication: JUVENILE IDIOPATHIC ARTHRITIS
     Route: 048
  4. METHOTREXATE [Concomitant]
     Indication: JUVENILE IDIOPATHIC ARTHRITIS
     Dates: start: 201304

REACTIONS (1)
  - Drug ineffective [Unknown]
